FAERS Safety Report 12463913 (Version 1)
Quarter: 2016Q2

REPORT INFORMATION
  Report Type: Other
  Country: US (occurrence: US)
  Receive Date: 20160614
  Receipt Date: 20160614
  Transmission Date: 20160815
  Serious: Yes (Other)
  Sender: FDA-Public Use
  Company Number: US-ACORDA-ACO_122302_2016

PATIENT
  Age: 49 Year
  Sex: Male

DRUGS (3)
  1. CIPROFLOXACIN. [Concomitant]
     Active Substance: CIPROFLOXACIN
     Indication: INFECTION
     Route: 065
  2. AMPYRA [Suspect]
     Active Substance: DALFAMPRIDINE
     Dosage: UNK
     Route: 065
     Dates: start: 201603
  3. AMPYRA [Suspect]
     Active Substance: DALFAMPRIDINE
     Indication: MULTIPLE SCLEROSIS
     Dosage: UNK
     Route: 065
     Dates: start: 2013

REACTIONS (7)
  - Therapy cessation [Recovered/Resolved]
  - Sepsis [Unknown]
  - Inappropriate schedule of drug administration [Recovered/Resolved]
  - Kidney infection [Recovered/Resolved]
  - Muscle disorder [Unknown]
  - Surgery [Unknown]
  - Therapeutic response unexpected [Unknown]

NARRATIVE: CASE EVENT DATE: 20160311
